FAERS Safety Report 14992040 (Version 2)
Quarter: 2018Q3

REPORT INFORMATION
  Report Type: Report from Study
  Country: CA (occurrence: CA)
  Receive Date: 20180608
  Receipt Date: 20180713
  Transmission Date: 20181010
  Serious: Yes (Death, Other)
  Sender: FDA-Public Use
  Company Number: CA-ACTELION-A-NJ2018-173584

PATIENT
  Age: 76 Year
  Sex: Female

DRUGS (22)
  1. ASA [Concomitant]
     Active Substance: ASPIRIN
  2. LANSOPRAZOLE. [Concomitant]
     Active Substance: LANSOPRAZOLE
  3. CALCIUM [Concomitant]
     Active Substance: CALCIUM
  4. SOFLAX [Concomitant]
     Active Substance: DOCUSATE
  5. AZATHIOPRINE. [Concomitant]
     Active Substance: AZATHIOPRINE
  6. LEVOTHYROXINE. [Concomitant]
     Active Substance: LEVOTHYROXINE
  7. CALCITRIOL. [Concomitant]
     Active Substance: CALCITRIOL
  8. LORAZEPAM. [Concomitant]
     Active Substance: LORAZEPAM
  9. FOLIC ACID. [Concomitant]
     Active Substance: FOLIC ACID
  10. FUROSEMIDE. [Concomitant]
     Active Substance: FUROSEMIDE
  11. STATEX (MORPHINE SULFATE) [Concomitant]
     Active Substance: MORPHINE SULFATE
  12. TYLENOL ARTHRITIS PAIN [Concomitant]
     Active Substance: ACETAMINOPHEN
  13. OMEGA 3 [Concomitant]
     Active Substance: OMEGA-3 FATTY ACIDS
  14. ADCIRCA [Concomitant]
     Active Substance: TADALAFIL
  15. BISACODYL. [Concomitant]
     Active Substance: BISACODYL
  16. MULTIVITAMIN [Concomitant]
     Active Substance: VITAMINS
  17. RABEPRAZOLE [Concomitant]
     Active Substance: RABEPRAZOLE
  18. MORPHINE [Concomitant]
     Active Substance: MORPHINE
  19. OPSUMIT [Suspect]
     Active Substance: MACITENTAN
     Indication: PULMONARY ARTERIAL HYPERTENSION
     Dosage: 10 MG, QD
     Route: 048
     Dates: start: 20151209, end: 201806
  20. CITALOPRAM [Concomitant]
     Active Substance: CITALOPRAM HYDROBROMIDE
  21. BUPROPION HYDROCHLORIDE. [Concomitant]
     Active Substance: BUPROPION HYDROCHLORIDE
  22. GLUCOSAMINE [Concomitant]
     Active Substance: GLUCOSAMINE

REACTIONS (2)
  - Death [Fatal]
  - Lung neoplasm malignant [Not Recovered/Not Resolved]

NARRATIVE: CASE EVENT DATE: 201805
